FAERS Safety Report 6199895-3 (Version None)
Quarter: 2009Q2

REPORT INFORMATION
  Report Type: 
  Country: None (occurrence: None)
  Receive Date: 20090522
  Receipt Date: 20090515
  Transmission Date: 20091009
  Serious: Yes (Disabling, Other)
  Sender: FDA-Public Use
  Company Number: US-PFIZER INC-2009215192

PATIENT
  Sex: Female
  Weight: 57 kg

DRUGS (3)
  1. LIPITOR [Suspect]
     Indication: BLOOD GLUCOSE
     Dosage: UNK
  2. METFORMIN [Concomitant]
     Dosage: UNK
  3. XANAX [Concomitant]
     Dosage: UNK

REACTIONS (2)
  - ATAXIA [None]
  - WHEELCHAIR USER [None]
